FAERS Safety Report 5637487-2 (Version None)
Quarter: 2008Q1

REPORT INFORMATION
  Report Type: 
  Country: None (occurrence: None)
  Receive Date: 20080225
  Receipt Date: 20080213
  Transmission Date: 20080703
  Serious: Yes (Other)
  Sender: FDA-Public Use
  Company Number: GB-PFIZER INC-2008014468

PATIENT
  Age: 55 Year
  Sex: Female

DRUGS (1)
  1. CHANTIX [Suspect]
     Route: 048

REACTIONS (3)
  - ABNORMAL DREAMS [None]
  - AGGRESSION [None]
  - DIZZINESS [None]
